FAERS Safety Report 4638613-4 (Version None)
Quarter: 2005Q2

REPORT INFORMATION
  Report Type: 
  Country: None (occurrence: None)
  Receive Date: 20050415
  Receipt Date: 20050415
  Transmission Date: 20051028
  Serious: No
  Sender: FDA-Public Use
  Company Number: None

PATIENT
  Sex: Male

DRUGS (1)
  1. PREDNISOLONE [Suspect]
     Indication: CORNEAL TRANSPLANT
     Dosage: QID  -}  QD

REACTIONS (1)
  - TRANSPLANT REJECTION [None]
